FAERS Safety Report 10366116 (Version 1)
Quarter: 2014Q3

REPORT INFORMATION
  Report Type: Spontaneous
  Country: IT (occurrence: None)
  Receive Date: 20140804
  Receipt Date: 20140804
  Transmission Date: 20150326
  Serious: Yes (Hospitalization)
  Sender: FDA-Public Use
  Company Number: SP08122

PATIENT
  Age: 82 Year
  Sex: Female

DRUGS (5)
  1. VALSARTAN/HYDROCHLOROTHIAZIDE [Suspect]
     Active Substance: HYDROCHLOROTHIAZIDE\VALSARTAN
     Route: 048
     Dates: start: 20140616, end: 20140616
  2. XIFAXAN [Suspect]
     Active Substance: RIFAXIMIN
     Route: 048
     Dates: start: 20140616, end: 20140616
  3. TARDYFER [Suspect]
     Active Substance: FERROUS SULFATE\FERROUS SULFATE, DRIED
     Route: 048
     Dates: start: 20140616, end: 20140616
  4. SEACOR [Suspect]
     Active Substance: OMEGA-3 FATTY ACIDS
     Route: 048
     Dates: start: 20140616, end: 20140616
  5. LASIX [Suspect]
     Active Substance: FUROSEMIDE
     Route: 048
     Dates: start: 20140616, end: 20140616

REACTIONS (3)
  - Vomiting [None]
  - Hypotension [None]
  - Intentional self-injury [None]

NARRATIVE: CASE EVENT DATE: 20140616
